FAERS Safety Report 4706097-3 (Version None)
Quarter: 2005Q2

REPORT INFORMATION
  Report Type: 
  Country: None (occurrence: None)
  Receive Date: 20050627
  Receipt Date: 20041103
  Transmission Date: 20051028
  Serious: Yes (Other)
  Sender: FDA-Public Use
  Company Number: US-JNJFOC-20041101320

PATIENT
  Sex: Male

DRUGS (1)
  1. FENTANYL [Suspect]
     Indication: INTENTIONAL MISUSE
     Dosage: 100 UG/HR, ORAL
     Route: 048
     Dates: start: 20041001, end: 20041001

REACTIONS (1)
  - DRUG ABUSER [None]
